FAERS Safety Report 10757296 (Version 2)
Quarter: 2015Q1

REPORT INFORMATION
  Report Type: Spontaneous
  Country: BE (occurrence: BE)
  Receive Date: 20150203
  Receipt Date: 20150311
  Transmission Date: 20150721
  Serious: Yes (Death)
  Sender: FDA-Public Use
  Company Number: BE-ELI_LILLY_AND_COMPANY-BE201501010359

PATIENT
  Age: 91 Year
  Sex: Female

DRUGS (6)
  1. APROVEL [Concomitant]
     Active Substance: IRBESARTAN
     Dosage: UNK, UNKNOWN
     Route: 065
  2. METOPROLOL [Concomitant]
     Active Substance: METOPROLOL
     Dosage: UNK, UNKNOWN
     Route: 065
  3. LANOXIN [Concomitant]
     Active Substance: DIGOXIN
     Dosage: UNK, UNKNOWN
     Route: 065
  4. ASAFLOW [Concomitant]
     Active Substance: ASPIRIN
     Dosage: UNK, UNKNOWN
     Route: 065
  5. CYMBALTA [Suspect]
     Active Substance: DULOXETINE HYDROCHLORIDE
     Indication: MAJOR DEPRESSION
     Dosage: 60 MG, QD
     Route: 065
     Dates: start: 20150116
  6. ESCITALOPRAM [Concomitant]
     Active Substance: ESCITALOPRAM OXALATE
     Indication: MAJOR DEPRESSION
     Dosage: UNK, UNKNOWN
     Route: 065

REACTIONS (1)
  - Arrhythmia [Fatal]
